FAERS Safety Report 12719968 (Version 1)
Quarter: 2016Q3

REPORT INFORMATION
  Report Type: Spontaneous
  Country: US (occurrence: US)
  Receive Date: 20160907
  Receipt Date: 20160907
  Transmission Date: 20161109
  Serious: Yes (Other)
  Sender: FDA-Public Use
  Company Number: US-JNJFOC-20160806996

PATIENT

DRUGS (1)
  1. LEVAQUIN [Suspect]
     Active Substance: LEVOFLOXACIN
     Indication: PRODUCT USED FOR UNKNOWN INDICATION
     Route: 048
     Dates: start: 200607

REACTIONS (6)
  - Psychiatric symptom [Unknown]
  - Skin disorder [Unknown]
  - Cardiovascular disorder [Unknown]
  - Neuropathy peripheral [Unknown]
  - Musculoskeletal injury [Unknown]
  - Sensory loss [Unknown]
